FAERS Safety Report 8163851-6 (Version None)
Quarter: 2012Q1

REPORT INFORMATION
  Report Type: 
  Country: None (occurrence: None)
  Receive Date: 20120224
  Receipt Date: 20120222
  Transmission Date: 20120608
  Serious: Yes (Other)
  Sender: FDA-Public Use
  Company Number: PHHY2012IT015434

PATIENT
  Sex: Female

DRUGS (10)
  1. ZOMETA [Suspect]
     Indication: MULTIPLE MYELOMA
     Dosage: 4 MG, QMO
     Route: 042
     Dates: start: 20090801, end: 20110801
  2. PEPTAZOL [Concomitant]
     Dosage: UNK UKN, UNK
  3. ARANESP [Concomitant]
     Dosage: UNK UKN, UNK
  4. TICLOPIDINE HCL [Concomitant]
     Dosage: UNK UKN, UNK
  5. LEDERFOLIN [Concomitant]
     Dosage: UNK UKN, UNK
  6. LANTUS [Concomitant]
     Dosage: UNK UKN, UNK
  7. DEPONIT [Concomitant]
     Dosage: UNK UKN, UNK
  8. NOVORAPID [Concomitant]
     Dosage: UNK UKN, UNK
  9. ATORVASTATIN CALCIUM [Concomitant]
     Dosage: UNK UKN, UNK
  10. PENTACOL [Concomitant]
     Dosage: UNK UKN, UNK

REACTIONS (1)
  - OSTEONECROSIS OF JAW [None]
